FAERS Safety Report 4469288-5 (Version None)
Quarter: 2004Q4

REPORT INFORMATION
  Report Type: 
  Country: None (occurrence: None)
  Receive Date: 20041008
  Receipt Date: 20030909
  Transmission Date: 20050328
  Serious: No
  Sender: FDA-Public Use
  Company Number: US-BRISTOL-MYERS SQUIBB COMPANY-12380952

PATIENT
  Age: 62 Year
  Sex: Female
  Weight: 77 kg

DRUGS (1)
  1. AVAPRO [Suspect]
     Indication: HYPERTENSION
     Route: 048
     Dates: start: 20030815, end: 20030831

REACTIONS (4)
  - ALOPECIA [None]
  - LEUKOCYTOCLASTIC VASCULITIS [None]
  - PRURITUS [None]
  - RASH [None]
